FAERS Safety Report 6686127-2 (Version None)
Quarter: 2010Q2

REPORT INFORMATION
  Report Type: 
  Country: None (occurrence: None)
  Receive Date: 20100414
  Receipt Date: 20100330
  Transmission Date: 20101027
  Serious: Yes (Life-Threatening, Hospitalization)
  Sender: FDA-Public Use
  Company Number: 2010ZX000057

PATIENT
  Age: 30 Year
  Sex: Female
  Weight: 100.2449 kg

DRUGS (4)
  1. SUMAVEL DOSEPRO [Suspect]
     Indication: MIGRAINE
     Dosage: X1
     Dates: start: 20100326, end: 20100326
  2. AMITRIPTYLINE HYDROCHLORIDE [Concomitant]
  3. PRILOSEC [Concomitant]
  4. ACETAMINOPHEN [Concomitant]

REACTIONS (6)
  - CARDIAC ARREST [None]
  - CONVULSION [None]
  - FALL [None]
  - INCOHERENT [None]
  - PULMONARY EMBOLISM [None]
  - WOLFF-PARKINSON-WHITE SYNDROME [None]
